FAERS Safety Report 8360076-6 (Version None)
Quarter: 2012Q2

REPORT INFORMATION
  Report Type: 
  Country: None (occurrence: None)
  Receive Date: 20120515
  Receipt Date: 20110526
  Transmission Date: 20120825
  Serious: No
  Sender: FDA-Public Use
  Company Number: US-ALEXION-A201100750

PATIENT
  Sex: Female

DRUGS (3)
  1. DECADRON [Concomitant]
     Dosage: 12 MG, 7 DAYS ON/7 DAYS OFF
     Dates: start: 20110201, end: 20110501
  2. SOLIRIS [Suspect]
     Indication: PAROXYSMAL NOCTURNAL HAEMOGLOBINURIA
     Dosage: UNK
     Route: 042
  3. CYCLOSPORINE [Concomitant]

REACTIONS (4)
  - WEIGHT INCREASED [None]
  - HAIR GROWTH ABNORMAL [None]
  - DEPRESSION [None]
  - FATIGUE [None]
